FAERS Safety Report 5296179-2 (Version None)
Quarter: 2007Q2

REPORT INFORMATION
  Report Type: 
  Country: None (occurrence: None)
  Receive Date: 20070413
  Receipt Date: 20070412
  Transmission Date: 20071010
  Serious: Yes (Other)
  Sender: FDA-Public Use
  Company Number: US-GLAXOSMITHKLINE-A0646288A

PATIENT
  Age: 41 Year
  Sex: Female

DRUGS (14)
  1. TYKERB [Suspect]
     Indication: BREAST CANCER
     Dosage: 250MG FIVE TIMES PER DAY
     Route: 048
     Dates: start: 20060330, end: 20070407
  2. ATENOLOL [Suspect]
     Dates: end: 20070408
  3. AZITHROMYCIN [Concomitant]
  4. LASIX [Concomitant]
  5. UNKNOWN MEDICATION [Concomitant]
  6. ATIVAN [Concomitant]
  7. XELODA [Concomitant]
     Dosage: 2000MG PER DAY
  8. DECADRON [Concomitant]
  9. NAPROSYN [Concomitant]
  10. PEPCID [Concomitant]
  11. VALIUM [Concomitant]
  12. ERYTHROMYCIN [Concomitant]
     Indication: INFECTION PROPHYLAXIS
  13. TESSALON [Concomitant]
  14. MORPHINE [Concomitant]

REACTIONS (8)
  - CYANOSIS [None]
  - DRUG INTERACTION [None]
  - ERYTHEMA [None]
  - HYPOAESTHESIA [None]
  - NECROSIS [None]
  - PARAESTHESIA [None]
  - SKIN DISCOLOURATION [None]
  - SKIN DISORDER [None]
